FAERS Safety Report 5584500-7 (Version None)
Quarter: 2008Q1

REPORT INFORMATION
  Report Type: 
  Country: None (occurrence: None)
  Receive Date: 20080103
  Receipt Date: 20071218
  Transmission Date: 20080703
  Serious: Yes (Hospitalization)
  Sender: FDA-Public Use
  Company Number: 2007VX003030

PATIENT
  Age: 1 Year
  Weight: 10 kg

DRUGS (1)
  1. PERMAX [Suspect]

REACTIONS (2)
  - ACCIDENTAL DRUG INTAKE BY CHILD [None]
  - VOMITING [None]
